FAERS Safety Report 8676196 (Version 3)
Quarter: 2013Q4

REPORT INFORMATION
  Report Type: Spontaneous
  Country: US (occurrence: US)
  Receive Date: 20120720
  Receipt Date: 20131101
  Transmission Date: 20140711
  Serious: No
  Sender: FDA-Public Use
  Company Number: US-009507513-1207USA005244

PATIENT
  Age: 50 Year
  Sex: Male

DRUGS (5)
  1. PROPECIA [Suspect]
     Dosage: UNK UNK, QD
     Route: 048
     Dates: start: 199806
  2. PROPECIA [Suspect]
     Dosage: 0.5 MG, QD
     Route: 048
  3. PROPECIA [Suspect]
     Dosage: UNK UNK, QD
     Route: 048
     Dates: end: 20120626
  4. PROPECIA [Suspect]
     Dosage: UNK, QID
     Dates: start: 201107
  5. FLONASE [Concomitant]

REACTIONS (6)
  - Fear [Unknown]
  - Libido decreased [Recovering/Resolving]
  - Hair disorder [Unknown]
  - Musculoskeletal stiffness [Recovering/Resolving]
  - Wrong technique in drug usage process [Unknown]
  - Alopecia [Unknown]
